FAERS Safety Report 4810776-7 (Version None)
Quarter: 2005Q4

REPORT INFORMATION
  Report Type: 
  Country: None (occurrence: None)
  Receive Date: 20051026
  Receipt Date: 20031009
  Transmission Date: 20060501
  Serious: Yes (Hospitalization)
  Sender: FDA-Public Use
  Company Number: CA-BOEHRINGER INGELHEIM PHARMACEUTICALS, INC.-2005-CN-00331CN

PATIENT
  Age: 69 Year

DRUGS (13)
  1. ATROVENT [Suspect]
     Route: 055
  2. COMBIVENT [Suspect]
     Route: 055
  3. MODURET [Concomitant]
  4. PULMICORT [Concomitant]
  5. LEVAQUIN [Concomitant]
  6. ASCORBIC ACID [Concomitant]
  7. SENIOR VITAMIN [Concomitant]
  8. ASPIRIN [Concomitant]
  9. COENZYME Q10 [Concomitant]
  10. TIAZAC [Concomitant]
     Indication: BLOOD PRESSURE
  11. APO HYDRO [Concomitant]
  12. OXYGEN [Concomitant]
  13. ANTI-INFLAMMATORIES [Concomitant]

REACTIONS (7)
  - ASTHENIA [None]
  - BRONCHITIS [None]
  - DRUG INTERACTION [None]
  - HAEMOPTYSIS [None]
  - HEART RATE INCREASED [None]
  - HYPERTENSION [None]
  - INFECTION [None]
